FAERS Safety Report 5901064-6 (Version None)
Quarter: 2008Q3

REPORT INFORMATION
  Report Type: 
  Country: None (occurrence: None)
  Receive Date: 20080929
  Receipt Date: 20080916
  Transmission Date: 20090109
  Serious: Yes (Hospitalization, Other)
  Sender: FDA-Public Use
  Company Number: US-ROCHE-578383

PATIENT
  Sex: Male
  Weight: 77.6 kg

DRUGS (10)
  1. PEG-INTERFERON A-2A (RO 25-8310) [Suspect]
     Dosage: FORM: PRE-FILLED SYRINGE
     Route: 058
     Dates: start: 20080203, end: 20080805
  2. RIBAVIRIN [Suspect]
     Route: 065
     Dates: start: 20080120, end: 20080525
  3. PEG-INTERFERON ALPHA 2B [Suspect]
     Indication: DRUG USE FOR UNKNOWN INDICATION
     Route: 058
     Dates: start: 20080808
  4. BUPROPION HCL [Concomitant]
     Dosage: DOSE: 150 MG QD
     Route: 048
  5. DEPAKOTE [Concomitant]
     Route: 048
  6. LEXAPRO [Concomitant]
     Dosage: DOSE: 20 QD
     Route: 048
  7. KEPPRA [Concomitant]
     Route: 048
  8. NEUPOGEN [Concomitant]
     Dosage: DOSE: 480
     Route: 058
  9. PROPECIA [Concomitant]
     Dosage: DOSE: 1 MG QD
     Route: 048
  10. ASPIRIN [Concomitant]
     Dosage: DOSE 81 MG QD
     Route: 048

REACTIONS (2)
  - CELLULITIS STAPHYLOCOCCAL [None]
  - WHITE BLOOD CELL COUNT DECREASED [None]
